FAERS Safety Report 8121899-1 (Version None)
Quarter: 2012Q1

REPORT INFORMATION
  Report Type: 
  Country: None (occurrence: None)
  Receive Date: 20120206
  Receipt Date: 20120127
  Transmission Date: 20120608
  Serious: Yes (Other)
  Sender: FDA-Public Use
  Company Number: 2012MA001267

PATIENT
  Age: 67 Year
  Sex: Female
  Weight: 140 kg

DRUGS (4)
  1. PROZAC [Concomitant]
  2. ALPRAZOLAM [Suspect]
     Indication: STRESS
     Dosage: 0.25 MG;BID;PO
     Route: 048
  3. IBUPROFEN [Concomitant]
  4. RANITIDINE [Concomitant]

REACTIONS (1)
  - HYPOTHYROIDISM [None]
